FAERS Safety Report 7431224-7 (Version None)
Quarter: 2011Q2

REPORT INFORMATION
  Report Type: 
  Country: None (occurrence: None)
  Receive Date: 20110421
  Receipt Date: 20110421
  Transmission Date: 20111010
  Serious: Yes (Other)
  Sender: FDA-Public Use
  Company Number: NL-ABBOTT-11P-114-0710967-00

PATIENT
  Sex: Female
  Weight: 75.5 kg

DRUGS (12)
  1. ACENOCOUMAROL [Concomitant]
     Indication: ANTICOAGULANT THERAPY
     Dosage: AS PER REGIMEN
     Route: 048
     Dates: start: 20101101
  2. OMEPRAZOLE [Concomitant]
     Indication: GASTRIC DISORDER
     Route: 048
  3. ETORICOXIB FILM COATED [Concomitant]
     Indication: ANKYLOSING SPONDYLITIS
     Route: 048
     Dates: start: 20100801
  4. SULFASALAZINE [Concomitant]
     Indication: ANKYLOSING SPONDYLITIS
     Dosage: GASTRO-RESISTANT 500 MG
     Route: 048
     Dates: start: 20100801
  5. ALENDRONATE SODIUM [Concomitant]
     Indication: OSTEOPOROSIS PROPHYLAXIS
     Dates: start: 20100801
  6. RIZAPTRIPTAN FAST DISSOLVING [Concomitant]
     Indication: MIGRAINE
     Route: 048
     Dates: start: 20020101
  7. HUMIRA [Suspect]
     Indication: ANKYLOSING SPONDYLITIS
     Route: 058
     Dates: start: 20110222
  8. LEVONORGESTREL AND ETHINYL ESTRADIOL [Concomitant]
     Indication: VAGINAL HAEMORRHAGE
     Dosage: 30/150 MCG
     Route: 048
  9. OMEPRAZOLE [Concomitant]
     Indication: PROPHYLAXIS
  10. FERROUS SULFATE TAB [Concomitant]
     Indication: ANAEMIA
     Dosage: SUSTAINED RELEASE
     Route: 048
     Dates: start: 20101201
  11. FOLIC ACID [Concomitant]
     Indication: VITAMIN SUPPLEMENTATION
     Route: 048
     Dates: start: 20101201
  12. MACROGOL/SALTS POWDER DRING [Concomitant]
     Indication: CONSTIPATION
     Dosage: (MOVIC/MOLAX/LAXATIVE)
     Route: 048
     Dates: start: 20100801

REACTIONS (4)
  - ACNE [None]
  - RHINORRHOEA [None]
  - BASAL CELL CARCINOMA [None]
  - RASH [None]
